FAERS Safety Report 8550644-0 (Version None)
Quarter: 2012Q3

REPORT INFORMATION
  Report Type: 
  Country: None (occurrence: None)
  Receive Date: 20120730
  Receipt Date: 20120725
  Transmission Date: 20120928
  Serious: No
  Sender: FDA-Public Use
  Company Number: US-TEVA-350538USA

PATIENT
  Sex: Female
  Weight: 79.45 kg

DRUGS (6)
  1. PLAN B ONE-STEP [Suspect]
     Indication: POST COITAL CONTRACEPTION
     Dosage: 1.5 MILLIGRAM;
     Route: 048
     Dates: start: 20120601, end: 20120601
  2. PLAN B ONE-STEP [Suspect]
     Dosage: 1.5 MILLIGRAM;
     Route: 048
     Dates: start: 20120716, end: 20120716
  3. PLAN B ONE-STEP [Suspect]
     Dosage: 1.5 MILLIGRAM;
     Route: 048
     Dates: start: 20120720, end: 20120720
  4. ADDERALL 5 [Concomitant]
     Indication: ATTENTION DEFICIT/HYPERACTIVITY DISORDER
  5. CAMPRAL [Concomitant]
     Indication: ALCOHOLISM
  6. ZOLOFT [Concomitant]
     Indication: DEPRESSION

REACTIONS (1)
  - MENSTRUATION IRREGULAR [None]
